FAERS Safety Report 8983692 (Version 6)
Quarter: 2014Q1

REPORT INFORMATION
  Report Type: Report from Study
  Country: US (occurrence: US)
  Receive Date: 20121224
  Receipt Date: 20140113
  Transmission Date: 20141002
  Serious: Yes (Life-Threatening)
  Sender: FDA-Public Use
  Company Number: US-NOVOPROD-367597

PATIENT
  Age: 84 Year
  Sex: Male
  Weight: 71.1 kg

DRUGS (12)
  1. LIRAGLUTIDE FLEXPEN [Suspect]
     Indication: TYPE 2 DIABETES MELLITUS
     Dosage: 1.2 MG, QD
     Route: 058
     Dates: start: 20120305
  2. FLOMAX                             /00889901/ [Concomitant]
     Dosage: 0.4 MG, QD
     Route: 048
  3. FINASTERIDE [Concomitant]
     Dosage: 5 MG, QD
     Route: 048
  4. GLIPIZIDE [Concomitant]
     Dosage: 5 MG, QD
     Route: 048
  5. PRAVASTATIN [Concomitant]
     Dosage: 40 MG, QD
     Route: 048
  6. TIMOLOL [Concomitant]
     Dosage: 10 ML, BID
     Route: 047
  7. TRAVATAN Z [Concomitant]
     Dosage: 5 ML, UNK
  8. RANITIDINE HCL [Concomitant]
     Dosage: 75 MG, QD
     Route: 048
  9. HYDROCHLOROTHIAZIDE [Concomitant]
     Dosage: 12.5 MG, UNK
     Route: 048
  10. AMLODIPINE [Concomitant]
     Dosage: 5 MG, UNK
     Route: 048
  11. FOSINOPRIL [Concomitant]
     Dosage: 20 MG, UNK
     Route: 048
  12. OXYBUTYNIN CHLORIDE [Concomitant]
     Dosage: 5 MG, UNK
     Route: 048

REACTIONS (1)
  - Syncope [Recovered/Resolved with Sequelae]
